FAERS Safety Report 25982422 (Version 1)
Quarter: 2025Q4

REPORT INFORMATION
  Report Type: Spontaneous
  Country: MY (occurrence: MY)
  Receive Date: 20251031
  Receipt Date: 20251031
  Transmission Date: 20260118
  Serious: Yes (Other)
  Sender: STRIDES
  Company Number: MY-STRIDES ARCOLAB LIMITED-2025SP013665

PATIENT

DRUGS (2)
  1. VALGANCICLOVIR HYDROCHLORIDE [Suspect]
     Active Substance: VALGANCICLOVIR HYDROCHLORIDE
     Indication: Cytomegalovirus viraemia
     Dosage: 16 MILLIGRAM/KILOGRAM, BID
     Route: 048
  2. GANCICLOVIR [Suspect]
     Active Substance: GANCICLOVIR
     Indication: Cytomegalovirus viraemia
     Dosage: 6 MILLIGRAM/KILOGRAM, BID
     Route: 042

REACTIONS (2)
  - Hepatitis [Unknown]
  - Off label use [Unknown]
